FAERS Safety Report 9950301 (Version 1)
Quarter: 2014Q1

REPORT INFORMATION
  Report Type: Spontaneous
  Country: JP (occurrence: JP)
  Receive Date: 20140304
  Receipt Date: 20140304
  Transmission Date: 20141002
  Serious: Yes (Hospitalization)
  Sender: FDA-Public Use
  Company Number: JP-009507513-1403JPN001272

PATIENT
  Age: 83 Year
  Sex: Male

DRUGS (8)
  1. GASTER D [Suspect]
     Indication: GASTRIC ULCER
     Dosage: DAILY DOSE: 40 MG
     Route: 048
     Dates: start: 20140111, end: 201402
  2. ALLOID G [Concomitant]
     Dosage: UNK
     Route: 048
     Dates: start: 20131204, end: 201402
  3. ULCERLMIN [Concomitant]
     Dosage: UNK
     Route: 048
     Dates: start: 20140111, end: 201402
  4. SIGMART [Concomitant]
     Dosage: UNK
     Route: 048
     Dates: start: 20131106, end: 201402
  5. NORVASC [Concomitant]
     Dosage: UNK
     Route: 048
     Dates: start: 20131106, end: 201402
  6. THEO-DUR [Concomitant]
     Dosage: UNK
     Route: 048
     Dates: start: 20140111, end: 201402
  7. LENDORMIN [Concomitant]
     Dosage: UNK
     Route: 048
     Dates: start: 20131106, end: 201402
  8. VOLTAREN [Concomitant]
     Dosage: UNK
     Dates: start: 20140111, end: 201402

REACTIONS (1)
  - Electrocardiogram QT prolonged [Recovering/Resolving]
